FAERS Safety Report 8205458-8 (Version None)
Quarter: 2012Q1

REPORT INFORMATION
  Report Type: 
  Country: None (occurrence: None)
  Receive Date: 20120309
  Receipt Date: 20120224
  Transmission Date: 20120608
  Serious: Yes (Hospitalization)
  Sender: FDA-Public Use
  Company Number: TCI2011A02616

PATIENT
  Age: 57 Year
  Sex: Female

DRUGS (11)
  1. ACTOS [Suspect]
     Indication: TYPE 2 DIABETES MELLITUS
     Dosage: 15 MG 915 MG, 1 IN 1 D), PER ORAL
     Route: 048
     Dates: start: 20091106
  2. CRESTOR [Concomitant]
  3. GLUFAST (MITIGLINIDE CALCIUM) [Suspect]
     Indication: TYPE 2 DIABETES MELLITUS
     Dosage: 30 MG (10 MG, 3 IN 1 D), PER ORAL
     Route: 048
     Dates: start: 20100302
  4. VOGLIBOSE OD (VOGLIBOSE) [Concomitant]
  5. ASRARN (LISINOPRIL) [Concomitant]
  6. EVISTA [Concomitant]
  7. METFORMIN HCL [Concomitant]
  8. NATEGLINIDE [Concomitant]
  9. ATELEC (CILNIDIPINE) [Concomitant]
  10. BENET TABLETS [Concomitant]
  11. CILNIDIPINE [Concomitant]

REACTIONS (4)
  - WEIGHT INCREASED [None]
  - ASTHENIA [None]
  - HYPOKALAEMIA [None]
  - CONDITION AGGRAVATED [None]
